FAERS Safety Report 5128438-8 (Version None)
Quarter: 2006Q4

REPORT INFORMATION
  Report Type: 
  Country: None (occurrence: None)
  Receive Date: 20061004
  Receipt Date: 20060920
  Transmission Date: 20070319
  Serious: Yes (Other)
  Sender: FDA-Public Use
  Company Number: 2006BH013493

PATIENT
  Age: 7 Year
  Sex: Male
  Weight: 29.6 kg

DRUGS (1)
  1. RECOMBINATE [Suspect]
     Indication: FACTOR VIII DEFICIENCY
     Dosage: AS NEEDED; IV
     Route: 042
     Dates: start: 20000208

REACTIONS (2)
  - CHEST PAIN [None]
  - THROAT TIGHTNESS [None]
